FAERS Safety Report 10638971 (Version 1)
Quarter: 2014Q4

REPORT INFORMATION
  Report Type: Spontaneous
  Country: GB (occurrence: GB)
  Receive Date: 20141208
  Receipt Date: 20141208
  Transmission Date: 20150529
  Serious: Yes (Other)
  Sender: FDA-Public Use
  Company Number: GB-GLAXOSMITHKLINE-GB2014029809

PATIENT

DRUGS (4)
  1. SUMATRIPTAN. [Suspect]
     Active Substance: SUMATRIPTAN
     Indication: MIGRAINE
     Dosage: ONLY 1 TABLET TAKEN
     Route: 048
     Dates: start: 20141114, end: 201411
  2. VENLAFAXINE HYDROCHLORIDE. [Suspect]
     Active Substance: VENLAFAXINE HYDROCHLORIDE
     Indication: DEPRESSION
     Dosage: AM NOW TAKING TWO 75MG TABS DAILY. PREVIOUSLY,I HAD ONLY BEEN ON 1 75MG TABLET A DAY,
     Route: 048
     Dates: start: 20141114, end: 20141123
  3. VENLAFAXINE HYDROCHLORIDE. [Suspect]
     Active Substance: VENLAFAXINE HYDROCHLORIDE
     Dosage: AM NOW TAKING TWO 75MG TABS DAILY. PREVIOUSLY,I HAD ONLY BEEN ON 1 75MG TABLET A DAY.
     Route: 048
     Dates: end: 20141113
  4. NAPROXEN. [Suspect]
     Active Substance: NAPROXEN
     Indication: TENSION
     Dosage: ONLY 2 TABLETS TAKEN.
     Route: 048
     Dates: start: 20141114, end: 20141123

REACTIONS (7)
  - Abdominal distension [Not Recovered/Not Resolved]
  - Malaise [Not Recovered/Not Resolved]
  - Anxiety [Not Recovered/Not Resolved]
  - Abnormal faeces [Not Recovered/Not Resolved]
  - Mucous stools [Not Recovered/Not Resolved]
  - Poor quality sleep [Not Recovered/Not Resolved]
  - Condition aggravated [Not Recovered/Not Resolved]

NARRATIVE: CASE EVENT DATE: 20141116
